FAERS Safety Report 12072986 (Version 2)
Quarter: 2016Q1

REPORT INFORMATION
  Report Type: Spontaneous
  Country: CH (occurrence: CH)
  Receive Date: 20160212
  Receipt Date: 20160218
  Transmission Date: 20160526
  Serious: Yes (Other)
  Sender: FDA-Public Use
  Company Number: CH-GLAXOSMITHKLINE-CH2016GSK018536

PATIENT
  Age: 22 Year
  Sex: Female
  Weight: 54 kg

DRUGS (2)
  1. LAMICTAL [Suspect]
     Active Substance: LAMOTRIGINE
     Indication: BIPOLAR DISORDER
     Dosage: 200 MG, QD
     Route: 048
     Dates: start: 201501
  2. ESCITALOPRAM [Concomitant]
     Active Substance: ESCITALOPRAM OXALATE
     Indication: BIPOLAR DISORDER
     Dosage: 20 MG, QD
     Route: 048
     Dates: start: 201501

REACTIONS (9)
  - Myalgia [Unknown]
  - Leukopenia [Not Recovered/Not Resolved]
  - Thrombocytopenia [Unknown]
  - Erythropenia [Not Recovered/Not Resolved]
  - Dyspnoea [Unknown]
  - Hypobarism [Unknown]
  - Infection susceptibility increased [Unknown]
  - Exercise tolerance decreased [Unknown]
  - Night sweats [Unknown]

NARRATIVE: CASE EVENT DATE: 201601
